FAERS Safety Report 14173082 (Version 1)
Quarter: 2017Q4

REPORT INFORMATION
  Report Type: Report from Study
  Country: US (occurrence: US)
  Receive Date: 20171109
  Receipt Date: 20171109
  Transmission Date: 20180321
  Serious: No
  Sender: FDA-Public Use
  Company Number: US-ACADIA PHARMACEUTICALS INC.-ACA-2017-005601

PATIENT

DRUGS (1)
  1. NUPLAZID [Suspect]
     Active Substance: PIMAVANSERIN TARTRATE
     Indication: PRODUCT USED FOR UNKNOWN INDICATION
     Dosage: 34 MG, QD
     Dates: start: 20170913, end: 20170913

REACTIONS (3)
  - Urinary tract infection [Unknown]
  - Bed rest [Unknown]
  - Asthenia [Unknown]

NARRATIVE: CASE EVENT DATE: 20170913
